FAERS Safety Report 12199499 (Version 1)
Quarter: 2016Q1

REPORT INFORMATION
  Report Type: Spontaneous
  Country: US (occurrence: US)
  Receive Date: 20160322
  Receipt Date: 20160322
  Transmission Date: 20160526
  Serious: Yes (Other)
  Sender: FDA-Public Use
  Company Number: US-PFIZER INC-2016168289

PATIENT
  Sex: Male

DRUGS (2)
  1. CHANTIX [Suspect]
     Active Substance: VARENICLINE TARTRATE
     Dosage: 0.5 MG, 2X/DAY, 0.5 AT AM AND 0.5 AT PM
  2. CHANTIX [Suspect]
     Active Substance: VARENICLINE TARTRATE
     Dosage: 0.5 MG, 1X/DAY

REACTIONS (7)
  - Screaming [Unknown]
  - Nausea [Unknown]
  - Headache [Unknown]
  - Seizure [Unknown]
  - Flatulence [Unknown]
  - Discomfort [Unknown]
  - Pain [Unknown]
